FAERS Safety Report 23434565 (Version 1)
Quarter: 2024Q1

REPORT INFORMATION
  Report Type: Spontaneous
  Country: US (occurrence: US)
  Receive Date: 20240123
  Receipt Date: 20240123
  Transmission Date: 20240410
  Serious: Yes (Other)
  Sender: FDA-Public Use
  Company Number: US-NOVOPROD-1126478

PATIENT
  Age: 55 Year
  Sex: Female

DRUGS (1)
  1. WEGOVY [Suspect]
     Active Substance: SEMAGLUTIDE
     Indication: Weight decreased
     Dosage: 1.7 MG, SINGLE
     Route: 058
     Dates: start: 20230925, end: 20230925

REACTIONS (9)
  - Dehydration [Recovering/Resolving]
  - Vomiting [Recovered/Resolved]
  - Diarrhoea [Recovered/Resolved]
  - Cough [Recovering/Resolving]
  - Back pain [Recovering/Resolving]
  - Depression [Recovering/Resolving]
  - Nausea [Recovered/Resolved]
  - Injection site pain [Recovered/Resolved]
  - Off label use [Recovered/Resolved]

NARRATIVE: CASE EVENT DATE: 20230925
